FAERS Safety Report 7068643-7 (Version None)
Quarter: 2010Q4

REPORT INFORMATION
  Report Type: 
  Country: None (occurrence: None)
  Receive Date: 20101020
  Receipt Date: 20101007
  Transmission Date: 20110411
  Serious: Yes (Hospitalization)
  Sender: FDA-Public Use
  Company Number: GER/UKI/09/0008316

PATIENT
  Age: 56 Year
  Sex: Female

DRUGS (3)
  1. ONDANSETRON [Suspect]
     Indication: PROPHYLAXIS OF NAUSEA AND VOMITING
     Dosage: 8 MG, 2 IN 1 D
  2. METOCLOPRAMIDE [Suspect]
     Indication: PROPHYLAXIS OF NAUSEA AND VOMITING
     Dosage: 10 MG, 3 IN 1 D
  3. CHEMOTHERAPY (CHEMOTHERAPEUTICS NOS) [Concomitant]

REACTIONS (4)
  - ANXIETY [None]
  - DYSTONIA [None]
  - MUSCLE TWITCHING [None]
  - NAUSEA [None]
